FAERS Safety Report 7658592-5 (Version None)
Quarter: 2011Q3

REPORT INFORMATION
  Report Type: 
  Country: None (occurrence: None)
  Receive Date: 20110805
  Receipt Date: 20110801
  Transmission Date: 20111222
  Serious: Yes (Hospitalization, Other)
  Sender: FDA-Public Use
  Company Number: FR-BRISTOL-MYERS SQUIBB COMPANY-15944929

PATIENT
  Age: 39 Year
  Sex: Male

DRUGS (7)
  1. ZOPICLONE [Concomitant]
     Indication: INSOMNIA
     Route: 048
  2. EFFEXOR [Concomitant]
     Indication: DEPRESSION
     Dosage: CAPS 1DF:2TABS EFFEXOR 75 MG
     Route: 048
  3. ABACAVIR SULFATE AND LAMIVUDINE [Suspect]
     Indication: HIV INFECTION
     Dosage: 1 DF= 600MG/300MG TABS
     Route: 048
  4. REYATAZ [Suspect]
     Indication: HIV INFECTION
     Route: 048
     Dates: start: 20080128, end: 20110706
  5. DESLORATADINE [Concomitant]
     Route: 048
  6. BARACLUDE [Suspect]
     Indication: VIRAL HEPATITIS CARRIER
     Route: 048
     Dates: start: 20101115
  7. NORVIR [Suspect]
     Indication: HIV INFECTION
     Route: 048
     Dates: start: 20080128, end: 20110706

REACTIONS (3)
  - NEPHROLITHIASIS [None]
  - RENAL FAILURE [None]
  - RENAL COLIC [None]
